FAERS Safety Report 22683967 (Version 2)
Quarter: 2023Q4

REPORT INFORMATION
  Report Type: Spontaneous
  Country: US (occurrence: US)
  Receive Date: 20230708
  Receipt Date: 20231225
  Transmission Date: 20240110
  Serious: Yes (Death, Life-Threatening, Hospitalization)
  Sender: FDA-Public Use
  Company Number: US-STRIDES ARCOLAB LIMITED-2023SP010795

PATIENT
  Age: 60 Year
  Sex: Male

DRUGS (4)
  1. AMANTADINE HYDROCHLORIDE [Suspect]
     Active Substance: AMANTADINE HYDROCHLORIDE
     Indication: Hereditary ataxia
     Dosage: 400 MILLIGRAM PER DAY, PILLS
     Route: 048
  2. AMANTADINE HYDROCHLORIDE [Suspect]
     Active Substance: AMANTADINE HYDROCHLORIDE
     Dosage: 400 MILLIGRAM/ DAY (WAS RESTARTED VIA OROGASTRIC TUBE)
     Route: 049
  3. AMANTADINE HYDROCHLORIDE [Suspect]
     Active Substance: AMANTADINE HYDROCHLORIDE
     Dosage: 300 MILLIGRAM/DAY
     Route: 065
  4. RILUZOLE [Suspect]
     Active Substance: RILUZOLE
     Indication: Hereditary ataxia
     Dosage: 100 MILLIGRAM PER DAY
     Route: 065

REACTIONS (9)
  - Death [Fatal]
  - Dopamine agonist withdrawal syndrome [Recovered/Resolved]
  - Encephalopathy [Recovered/Resolved]
  - Unresponsive to stimuli [Recovered/Resolved]
  - Acute respiratory failure [Recovered/Resolved]
  - Coma [Recovered/Resolved]
  - Pneumonia aspiration [Recovered/Resolved]
  - Myoclonus [Recovered/Resolved]
  - Off label use [Unknown]
